FAERS Safety Report 8961816 (Version 1)
Quarter: 2012Q4

REPORT INFORMATION
  Report Type: 
  Country: US (occurrence: US)
  Receive Date: 20121213
  Receipt Date: 20121213
  Transmission Date: 20130627
  Serious: Yes (Hospitalization)
  Sender: FDA-Public Use
  Company Number: US-ELI_LILLY_AND_COMPANY-US201212000397

PATIENT
  Sex: Female

DRUGS (6)
  1. FORTEO [Suspect]
     Indication: OSTEOPOROSIS
     Dosage: 20 ug, qd
     Dates: start: 201203, end: 20121017
  2. FORTEO [Suspect]
     Dosage: 20 ug, qd
     Dates: start: 20121019
  3. ATENOLOL [Concomitant]
     Dosage: 50 mg, bid
  4. BENAZEPRIL [Concomitant]
     Dosage: 20 mg, qd
  5. COUMADIN [Concomitant]
     Dosage: 3 mg, qd
  6. POTASSIUM CHLORIDE [Concomitant]
     Dosage: 10 mg, bid

REACTIONS (1)
  - Musculoskeletal pain [Recovering/Resolving]
